FAERS Safety Report 20317919 (Version 1)
Quarter: 2022Q1

REPORT INFORMATION
  Report Type: Spontaneous
  Country: US (occurrence: None)
  Receive Date: 20220108
  Receipt Date: 20220108
  Transmission Date: 20220423
  Serious: Yes (Hospitalization)
  Sender: FDA-Public Use
  Company Number: None

PATIENT
  Age: 79 Year
  Weight: 82.8 kg

DRUGS (14)
  1. CYCLOPHOSPHAMIDE [Suspect]
     Active Substance: CYCLOPHOSPHAMIDE
     Indication: Plasma cell myeloma
     Dosage: FREQUENCY : WEEKLY;?
     Route: 048
     Dates: start: 20211214
  2. ISOSORBIDE MONONITRATE [Concomitant]
     Active Substance: ISOSORBIDE MONONITRATE
  3. LACTULOSE [Concomitant]
     Active Substance: LACTULOSE
  4. LASIX [Concomitant]
     Active Substance: FUROSEMIDE
  5. METOPROLOL [Concomitant]
     Active Substance: METOPROLOL
  6. ONDANSETRON [Concomitant]
     Active Substance: ONDANSETRON
  7. SODIUM BICARBONATE [Concomitant]
     Active Substance: SODIUM BICARBONATE
  8. SYNTHROID [Concomitant]
     Active Substance: LEVOTHYROXINE SODIUM
  9. ATORVASTATIN [Concomitant]
     Active Substance: ATORVASTATIN
  10. PROCHLORPERAZINE [Concomitant]
     Active Substance: PROCHLORPERAZINE
  11. DEXAMETHASONE [Concomitant]
     Active Substance: DEXAMETHASONE
  12. FOLIC ACID [Concomitant]
     Active Substance: FOLIC ACID
  13. HYDRALAZINE [Concomitant]
     Active Substance: HYDRALAZINE HYDROCHLORIDE
  14. ISOSORBIDE MONONITRATE [Concomitant]
     Active Substance: ISOSORBIDE MONONITRATE

REACTIONS (1)
  - Pneumonia [None]

NARRATIVE: CASE EVENT DATE: 20220108
